FAERS Safety Report 9869451 (Version 1)
Quarter: 2014Q1

REPORT INFORMATION
  Report Type: Spontaneous
  Country: US (occurrence: US)
  Receive Date: 20140205
  Receipt Date: 20140205
  Transmission Date: 20141002
  Serious: No
  Sender: FDA-Public Use
  Company Number: US-PFIZER INC-2014030429

PATIENT
  Sex: Male

DRUGS (7)
  1. SUTENT [Suspect]
     Dosage: UNK, CYCLIC
  2. SYNTHROID [Concomitant]
     Dosage: UNK
     Dates: start: 20080410
  3. ALLOPURINOL [Concomitant]
     Dosage: UNK
  4. COLCHICINE [Concomitant]
     Dosage: UNK, PRN
  5. UROXATRAL [Concomitant]
     Dosage: UNK
  6. OXYCODONE [Concomitant]
     Dosage: UNK, PRN
  7. XGEVA [Concomitant]
     Dosage: UNK

REACTIONS (4)
  - Fatigue [Unknown]
  - Diarrhoea [Unknown]
  - Rash [Unknown]
  - Eye swelling [Unknown]
